FAERS Safety Report 4409568-2 (Version None)
Quarter: 2004Q3

REPORT INFORMATION
  Report Type: 
  Country: None (occurrence: None)
  Receive Date: 20040723
  Receipt Date: 20040721
  Transmission Date: 20050211
  Serious: Yes (Other)
  Sender: FDA-Public Use
  Company Number: 163-20785-04070266

PATIENT
  Age: 45 Year
  Sex: Female

DRUGS (9)
  1. THALOMID [Suspect]
     Indication: GLIOBLASTOMA MULTIFORME
     Dosage: 400 MG, DAILY, ORAL
     Route: 048
     Dates: start: 20040408, end: 20040708
  2. KEPPRA [Concomitant]
  3. TRICOR [Concomitant]
  4. CELEBREX [Concomitant]
  5. REMERON [Concomitant]
  6. PROTONIX [Concomitant]
  7. COLACE (DOCUSATE SODIUM) [Concomitant]
  8. ETOPOSIDE [Concomitant]
  9. CYTOXAN [Concomitant]

REACTIONS (1)
  - BLOOD HUMAN CHORIONIC GONADOTROPIN POSITIVE [None]
